FAERS Safety Report 4443221-4 (Version None)
Quarter: 2004Q3

REPORT INFORMATION
  Report Type: 
  Country: None (occurrence: None)
  Receive Date: 20040901
  Receipt Date: 20040820
  Transmission Date: 20050211
  Serious: Yes (Death, Other)
  Sender: FDA-Public Use
  Company Number: USA-2004-0015607

PATIENT
  Age: 22 Year
  Sex: Female

DRUGS (5)
  1. OXYCONTIN [Suspect]
     Dosage: MG
  2. KETAMINE HCL [Suspect]
  3. DIAZEPAM [Suspect]
  4. MARIJUANA (CANNABIS) [Suspect]
  5. COCAINE (COCAINE) [Suspect]

REACTIONS (5)
  - ACCIDENT [None]
  - ACCIDENTAL OVERDOSE [None]
  - LOSS OF CONSCIOUSNESS [None]
  - MULTIPLE DRUG OVERDOSE [None]
  - POLYSUBSTANCE ABUSE [None]
